FAERS Safety Report 7060778-8 (Version None)
Quarter: 2010Q4

REPORT INFORMATION
  Report Type: 
  Country: None (occurrence: None)
  Receive Date: 20101025
  Receipt Date: 20100427
  Transmission Date: 20110411
  Serious: No
  Sender: FDA-Public Use
  Company Number: US-BAUSCH-2010BL002237

PATIENT
  Age: 26 Year
  Sex: Male

DRUGS (1)
  1. PROPARACAINE HCL [Suspect]
     Indication: EYE INJURY
     Route: 047
     Dates: start: 20100426, end: 20100426

REACTIONS (2)
  - DRUG INEFFECTIVE [None]
  - EYE IRRITATION [None]
